FAERS Safety Report 4697257-9 (Version None)
Quarter: 2005Q2

REPORT INFORMATION
  Report Type: 
  Country: None (occurrence: None)
  Receive Date: 20050622
  Receipt Date: 20030226
  Transmission Date: 20051028
  Serious: Yes (Hospitalization, Other)
  Sender: FDA-Public Use
  Company Number: JP-BRISTOL-MYERS SQUIBB COMPANY-12197265

PATIENT
  Age: 18 Year
  Sex: Male

DRUGS (11)
  1. ZERIT [Suspect]
     Indication: ACQUIRED IMMUNODEFICIENCY SYNDROME
     Dosage: 8/3/-8/10/98, 9/22/-10/31/98, 11/1/98-10/31/99, 11/1/99-3/31/01, 4/1/-10/22/01, 1/23/-3/31/02
     Route: 048
     Dates: start: 19980803
  2. VIDEX [Suspect]
     Indication: HIV INFECTION
     Dosage: 300 MG FROM 8/10/98-8/24/98, 300 MG FROM 9/8/98-9/22/98, AND 400 MG FROM 8/1/01-1/23/02
     Route: 048
     Dates: start: 19980810, end: 20020123
  3. EFAVIRENZ [Suspect]
     Indication: ACQUIRED IMMUNODEFICIENCY SYNDROME
     Route: 048
     Dates: start: 20010801, end: 20020123
  4. REYATAZ [Suspect]
     Indication: HIV INFECTION
     Route: 048
     Dates: start: 20020310
  5. RETROVIR [Suspect]
     Indication: ACQUIRED IMMUNODEFICIENCY SYNDROME
     Dosage: 100 MG TID FROM 11/1/97-8/3/98 AND 400 MG OD FROM 10/22/01-1/23/02
     Route: 048
     Dates: start: 19971101, end: 20020123
  6. EPIVIR [Suspect]
     Indication: ACQUIRED IMMUNODEFICIENCY SYNDROME
     Dosage: 11/1/97-8/10/98, 11/2/98-10/31/99, 11/1/99-3/31/01, 4/1/01-8/1/01, 1/23/01-3/31/02
     Route: 048
     Dates: start: 19971101
  7. VIRACEPT [Suspect]
     Indication: ACQUIRED IMMUNODEFICIENCY SYNDROME
     Dosage: 2/15/99-10/31/99, 11/1/99-3/31//01, 4/1/01-8/1/01
     Route: 048
     Dates: start: 19990215, end: 20010801
  8. KALETRA [Suspect]
     Indication: ACQUIRED IMMUNODEFICIENCY SYNDROME
     Route: 048
     Dates: start: 20020123, end: 20020309
  9. ANTIHEMOPHILIC FACTOR (HUMAN) [Concomitant]
     Dosage: 11/1/97-10/31/98, 11/1/98-10/31/99, 11/1/99-3/01, 4/1/01-3/31/02
     Dates: start: 19971101
  10. INTRON A [Concomitant]
     Dates: start: 20010917, end: 20020318
  11. REBETOL [Concomitant]
     Dates: start: 20010917, end: 20020318

REACTIONS (3)
  - GASTROENTERITIS [None]
  - HEPATIC STEATOSIS [None]
  - HEPATITIS C [None]
